FAERS Safety Report 16694450 (Version 1)
Quarter: 2019Q3

REPORT INFORMATION
  Report Type: Spontaneous
  Country: US (occurrence: US)
  Receive Date: 20190812
  Receipt Date: 20190812
  Transmission Date: 20191004
  Serious: No
  Sender: FDA-Public Use
  Company Number: US-009507513-1908USA003787

PATIENT
  Age: 85 Year
  Sex: Male

DRUGS (1)
  1. PROVENTIL [Suspect]
     Active Substance: ALBUTEROL
     Indication: ASTHMA
     Dosage: PRESCRIBED DOSAGE: ONE TO TWO EVERY FOUR TO SIX HOURS AS NEEDED
     Dates: start: 20190713, end: 2019

REACTIONS (3)
  - Product quality issue [Not Recovered/Not Resolved]
  - Poor quality product administered [Unknown]
  - Product dose omission [Unknown]

NARRATIVE: CASE EVENT DATE: 20190713
